FAERS Safety Report 8311127-6 (Version None)
Quarter: 2012Q2

REPORT INFORMATION
  Report Type: 
  Country: None (occurrence: None)
  Receive Date: 20120425
  Receipt Date: 20120418
  Transmission Date: 20120825
  Serious: Yes (Other)
  Sender: FDA-Public Use
  Company Number: US-JNJFOC-20120409550

PATIENT
  Sex: Female

DRUGS (2)
  1. ZYRTEC [Suspect]
     Route: 048
  2. ZYRTEC [Suspect]
     Indication: URTICARIA
     Route: 048
     Dates: start: 20120416

REACTIONS (3)
  - HALLUCINATION [None]
  - OFF LABEL USE [None]
  - NIGHTMARE [None]
